FAERS Safety Report 5001908-9 (Version None)
Quarter: 2006Q2

REPORT INFORMATION
  Report Type: 
  Country: None (occurrence: None)
  Receive Date: 20060512
  Receipt Date: 20060512
  Transmission Date: 20061013
  Serious: Yes (Other)
  Sender: FDA-Public Use
  Company Number: None

PATIENT
  Age: 56 Year
  Sex: Female
  Weight: 56.6996 kg

DRUGS (1)
  1. BONIVA [Suspect]
     Indication: OSTEOPOROSIS PROPHYLAXIS
     Dosage: 150 MG ONCE PER MONTH PO
     Route: 048
     Dates: start: 20060502, end: 20060502

REACTIONS (8)
  - BONE PAIN [None]
  - CHEST PAIN [None]
  - DYSPNOEA [None]
  - DYSSTASIA [None]
  - FEELING COLD [None]
  - MYALGIA [None]
  - PAIN [None]
  - PAIN IN EXTREMITY [None]
